FAERS Safety Report 21370416 (Version 1)
Quarter: 2022Q3

REPORT INFORMATION
  Report Type: Report from Study
  Country: IT (occurrence: None)
  Receive Date: 20220923
  Receipt Date: 20220923
  Transmission Date: 20221026
  Serious: Yes (Congenital Anomaly, Other)
  Sender: FDA-Public Use
  Company Number: None

PATIENT
  Age: 30 Year
  Sex: Female

DRUGS (1)
  1. REBIF [Suspect]
     Active Substance: INTERFERON BETA-1A
     Indication: Multiple sclerosis
     Dosage: 44 MCG 3 TIMES A WEEK
     Route: 058
     Dates: start: 20170809, end: 20220526

REACTIONS (1)
  - Abortion spontaneous complete [Recovered/Resolved]

NARRATIVE: CASE EVENT DATE: 20220707
